FAERS Safety Report 13538867 (Version 1)
Quarter: 2017Q2

REPORT INFORMATION
  Report Type: Spontaneous
  Country: US (occurrence: US)
  Receive Date: 20170511
  Receipt Date: 20170511
  Transmission Date: 20170830
  Serious: Yes (Hospitalization)
  Sender: FDA-Public Use
  Company Number: None

PATIENT
  Age: 48 Year
  Sex: Male
  Weight: 152.9 kg

DRUGS (7)
  1. TESSALON [Concomitant]
     Active Substance: BENZONATATE
  2. ZINBRYTA [Suspect]
     Active Substance: DACLIZUMAB
     Indication: MULTIPLE SCLEROSIS
     Dosage: ?          OTHER FREQUENCY:MONTHLY;?
     Route: 058
     Dates: start: 20170324, end: 20170428
  3. TRAZODONE [Concomitant]
     Active Substance: TRAZODONE HYDROCHLORIDE
  4. ZITHROMAX [Concomitant]
     Active Substance: AZITHROMYCIN DIHYDRATE
  5. LEVAQUIN [Concomitant]
     Active Substance: LEVOFLOXACIN
  6. EFFEXOR XR [Concomitant]
     Active Substance: VENLAFAXINE HYDROCHLORIDE
  7. DETROL [Concomitant]
     Active Substance: TOLTERODINE TARTRATE

REACTIONS (6)
  - Dyspnoea exertional [None]
  - Fatigue [None]
  - Pulmonary embolism [None]
  - Pyrexia [None]
  - Productive cough [None]
  - Gait disturbance [None]

NARRATIVE: CASE EVENT DATE: 20170508
